FAERS Safety Report 16258325 (Version 2)
Quarter: 2019Q2

REPORT INFORMATION
  Report Type: Report from Study
  Country: CH (occurrence: CH)
  Receive Date: 20190430
  Receipt Date: 20190506
  Transmission Date: 20190711
  Serious: Yes (Hospitalization)
  Sender: FDA-Public Use
  Company Number: CH-CELGENEUS-CHE-20190408959

PATIENT
  Age: 86 Year
  Sex: Female

DRUGS (3)
  1. ABRAXANE [Suspect]
     Active Substance: PACLITAXEL
     Route: 041
     Dates: start: 20190501
  2. ABRAXANE [Suspect]
     Active Substance: PACLITAXEL
     Indication: SOFT TISSUE SARCOMA
     Route: 041
     Dates: start: 20190417, end: 20190417
  3. GEMCITABINE [Suspect]
     Active Substance: GEMCITABINE\GEMCITABINE HYDROCHLORIDE
     Indication: SOFT TISSUE SARCOMA
     Route: 041
     Dates: start: 20190417

REACTIONS (1)
  - Back pain [Recovered/Resolved]

NARRATIVE: CASE EVENT DATE: 20190419
